FAERS Safety Report 8020501-7 (Version None)
Quarter: 2012Q1

REPORT INFORMATION
  Report Type: 
  Country: None (occurrence: None)
  Receive Date: 20120103
  Receipt Date: 20111220
  Transmission Date: 20120608
  Serious: Yes (Other)
  Sender: FDA-Public Use
  Company Number: US-ROCHE-794807

PATIENT
  Sex: Male
  Weight: 85.806 kg

DRUGS (16)
  1. CYCLOCORT [Concomitant]
  2. ACCUTANE [Suspect]
  3. AZITHROMYCIN [Concomitant]
  4. TETRACYCLIN [Concomitant]
  5. PREDNISONE TAB [Concomitant]
  6. ERYTHROMYCIN [Concomitant]
  7. ACCUTANE [Suspect]
     Dosage: DOSE 80 MG AND 120 MG NEXT DAY
     Dates: start: 20010101, end: 20020201
  8. DAPSONE [Concomitant]
  9. MINOCYCLINE HCL [Concomitant]
  10. CLEOCIN T [Concomitant]
  11. CYCLOBENZAPRINE HCL [Concomitant]
  12. ACCUTANE [Suspect]
     Dosage: BETWEEN FEBRUARY 2002 AND OCT 2008
     Route: 065
     Dates: start: 19971201, end: 19980301
  13. ZINC SULFATE [Concomitant]
  14. OXYCODONE HCL [Concomitant]
  15. ACCUTANE [Suspect]
     Indication: ACNE CONGLOBATA
     Dosage: BETWEEN APRIL 1997 AND FEBRUARY 2002
     Route: 065
     Dates: start: 19970401, end: 19971101
  16. BENADRYL [Concomitant]

REACTIONS (10)
  - COLITIS ULCERATIVE [None]
  - DEPRESSION [None]
  - SUICIDAL IDEATION [None]
  - HIATUS HERNIA [None]
  - IRRITABLE BOWEL SYNDROME [None]
  - INFLAMMATORY BOWEL DISEASE [None]
  - DRY SKIN [None]
  - HEADACHE [None]
  - GOUT [None]
  - BLOOD PRESSURE INCREASED [None]
